FAERS Safety Report 6087656-5 (Version None)
Quarter: 2009Q1

REPORT INFORMATION
  Report Type: 
  Country: None (occurrence: None)
  Receive Date: 20090223
  Receipt Date: 20090219
  Transmission Date: 20090719
  Serious: Yes (Hospitalization)
  Sender: FDA-Public Use
  Company Number: AT-BRISTOL-MYERS SQUIBB COMPANY-14460059

PATIENT
  Age: 3 Year
  Sex: Male

DRUGS (9)
  1. DASATINIB [Suspect]
     Indication: LEUKAEMIA
     Dosage: TAKEN ON 05DEC2008
     Route: 048
     Dates: start: 20080115
  2. PAROMOMYCIN [Concomitant]
     Route: 048
     Dates: start: 20081222
  3. TRIMETHOPRIM + SULFAMETHOXAZOLE [Concomitant]
     Route: 048
     Dates: start: 20070213
  4. AMPHOTERICIN B ORAL SOLUTION [Concomitant]
     Route: 048
     Dates: start: 20081222
  5. CEFACLOR [Concomitant]
     Route: 048
     Dates: start: 20090110
  6. ONDANSETRON [Concomitant]
     Route: 042
     Dates: start: 20090120
  7. NEUPOGEN [Concomitant]
     Route: 042
     Dates: start: 20090119, end: 20090121
  8. CYTARABINE [Concomitant]
     Route: 042
     Dates: start: 20090120, end: 20090121
  9. FLUDARABINE PHOSPHATE [Concomitant]
     Route: 042
     Dates: start: 20090120, end: 20090121

REACTIONS (2)
  - ILEUS [None]
  - STOMATITIS [None]
